FAERS Safety Report 23983222 (Version 2)
Quarter: 2024Q2

REPORT INFORMATION
  Report Type: Spontaneous
  Country: DE (occurrence: DE)
  Receive Date: 20240617
  Receipt Date: 20240624
  Transmission Date: 20240716
  Serious: Yes (Life-Threatening, Hospitalization, Other)
  Sender: FDA-Public Use
  Company Number: None

PATIENT
  Age: 76 Year
  Sex: Female
  Weight: 63 kg

DRUGS (13)
  1. OLANZAPINE [Suspect]
     Active Substance: OLANZAPINE
     Indication: Psychotic disorder
     Dosage: 1 ONCE DAILY (EVENING)
  2. OLANZAPINE [Suspect]
     Active Substance: OLANZAPINE
  3. MIRTAZAPINE [Suspect]
     Active Substance: MIRTAZAPINE
     Indication: Depression
     Dates: end: 20170609
  4. DIPYRONE [Suspect]
     Active Substance: DIPYRONE
     Indication: Pain
     Dosage: 30 DROPS ONCE
     Dates: start: 20170608, end: 20170608
  5. METAMIZOLE [Suspect]
     Active Substance: METAMIZOLE
     Indication: Product used for unknown indication
  6. METAMIZOLE [Suspect]
     Active Substance: METAMIZOLE
  7. CIPROFLOXACIN [Concomitant]
     Active Substance: CIPROFLOXACIN
     Indication: Otitis media acute
     Dosage: 1 TWICE DAILY (1 IN THE MORNING AND 1 IN THE EVENING)
     Dates: start: 20170608, end: 20170613
  8. PREDNISOLONE [Concomitant]
     Active Substance: PREDNISOLONE
     Indication: Otitis media acute
     Dosage: DECREASING FROM 2X 100 MG- 2X 75 MG-3X50 MG-25 MG
     Dates: start: 20170606, end: 20170613
  9. PREDNISOLONE [Concomitant]
     Active Substance: PREDNISOLONE
     Dosage: DECREASING FROM 2X 100 MG- 2X 75 MG-3X50 MG-25 MG
     Dates: start: 20170606, end: 20170613
  10. PREDNISOLONE [Concomitant]
     Active Substance: PREDNISOLONE
     Dosage: DECREASING FROM 2X 100 MG- 2X 75 MG-3X50 MG-25 MG
     Dates: start: 20170606, end: 20170613
  11. PREDNISOLONE [Concomitant]
     Active Substance: PREDNISOLONE
     Dosage: DECREASING FROM 2X 100 MG- 2X 75 MG-3X50 MG-25 MG
     Dates: start: 20170606, end: 20170613
  12. CEFTRIAXONE [Concomitant]
     Active Substance: CEFTRIAXONE\CEFTRIAXONE SODIUM
     Indication: Otitis media acute
     Dosage: 2G ONCE DAILY (MORNING)
     Route: 042
     Dates: start: 20170606, end: 20170609
  13. TORSEMIDE [Concomitant]
     Active Substance: TORSEMIDE
     Indication: Product used for unknown indication
     Dosage: 1 TWICE DAILY

REACTIONS (2)
  - Agranulocytosis [Recovered/Resolved]
  - Pyrexia [Unknown]

NARRATIVE: CASE EVENT DATE: 20170609
